FAERS Safety Report 18015883 (Version 1)
Quarter: 2020Q3

REPORT INFORMATION
  Report Type: Spontaneous
  Country: SK (occurrence: SK)
  Receive Date: 20200713
  Receipt Date: 20200713
  Transmission Date: 20201103
  Serious: Yes (Hospitalization, Congenital Anomaly, Other)
  Sender: FDA-Public Use
  Company Number: SK-PFIZER INC-2020262759

PATIENT
  Sex: Male

DRUGS (7)
  1. NADROPARINE [Suspect]
     Active Substance: NADROPARIN
     Dosage: 0.4 ML, DAILY (EVERY 24 HOURS)
     Route: 064
  2. INSULIN [Suspect]
     Active Substance: INSULIN NOS
     Indication: TYPE 1 DIABETES MELLITUS
     Dosage: 30.5 IU (UNITS, BOLUS 3?4?4 UNITS)
     Route: 064
  3. METHYLDOPA. [Suspect]
     Active Substance: METHYLDOPA
     Dosage: 250 MG, 4X/DAY (1?1?1?1 TBL)
     Route: 064
  4. MAGNESIUM LACTICUM [Suspect]
     Active Substance: MAGNESIUM LACTATE
     Dosage: 500 MG, 3X/DAY (1?1?1 TBL)
     Route: 064
  5. AMLODIPINE BESILATE [Suspect]
     Active Substance: AMLODIPINE BESYLATE
     Dosage: 5 MG, DAILY (1?0?0 TBL)
     Route: 064
  6. EPOETIN THETA [Suspect]
     Active Substance: ERYTHROPOIETIN
     Indication: ANAEMIA
     Dosage: 2000 IU, WEEKLY
     Route: 064
  7. FUROSEMIDE. [Suspect]
     Active Substance: FUROSEMIDE
     Dosage: 10 MG, 2X/DAY (1?1?0 TBL)
     Route: 064

REACTIONS (6)
  - Bronchopulmonary dysplasia [Unknown]
  - Umbilical hernia [Unknown]
  - Neonatal respiratory distress syndrome [Unknown]
  - Premature baby [Unknown]
  - Atrial septal defect [Unknown]
  - Maternal exposure during pregnancy [Unknown]
